FAERS Safety Report 7934271-1 (Version None)
Quarter: 2011Q4

REPORT INFORMATION
  Report Type: 
  Country: None (occurrence: None)
  Receive Date: 20111122
  Receipt Date: 20111107
  Transmission Date: 20120403
  Serious: Yes (Life-Threatening, Hospitalization)
  Sender: FDA-Public Use
  Company Number: GB-WATSON-2011-14653

PATIENT
  Age: 79 Year
  Sex: Female

DRUGS (16)
  1. LAMOTRIGINE [Suspect]
     Dosage: 50 MG, BID
     Route: 048
  2. PERINDOPRIL ERBUMINE [Concomitant]
     Indication: PRODUCT USED FOR UNKNOWN INDICATION
     Dosage: 2 MG, DAILY
     Route: 065
     Dates: start: 20110805
  3. ACETAMINOPHEN AND CODEINE PHOSPHATE [Concomitant]
     Indication: PRODUCT USED FOR UNKNOWN INDICATION
     Route: 065
  4. ZOLPIDEM [Concomitant]
     Indication: PRODUCT USED FOR UNKNOWN INDICATION
     Dosage: 5 MG, DAILY
     Route: 065
     Dates: start: 20110816, end: 20110825
  5. ADCAL-D3 [Concomitant]
     Indication: PRODUCT USED FOR UNKNOWN INDICATION
     Dosage: 1 DF, BID
     Route: 065
  6. BENDROFLUMETHIAZIDE [Concomitant]
     Indication: PRODUCT USED FOR UNKNOWN INDICATION
     Dosage: 2.5 MG, DAILY
     Route: 065
  7. BISOPROLOL FUMARATE [Concomitant]
     Indication: PRODUCT USED FOR UNKNOWN INDICATION
     Dosage: 1.25 MG, UNKNOWN
     Route: 065
     Dates: start: 20110809
  8. LAMOTRIGINE [Suspect]
     Indication: CONVULSION
     Dosage: 25 MG, BID
     Route: 048
     Dates: start: 20110811, end: 20110822
  9. LAMOTRIGINE [Suspect]
     Dosage: 50 MG, BID
     Route: 048
  10. PHENYTOIN [Concomitant]
     Indication: PRODUCT USED FOR UNKNOWN INDICATION
     Dosage: 800 MG, UNKNOWN
     Route: 042
     Dates: start: 20110805
  11. TRAVOPROST [Concomitant]
     Indication: PRODUCT USED FOR UNKNOWN INDICATION
     Dosage: UNK
     Route: 065
  12. OMEPRAZOLE [Concomitant]
     Indication: PRODUCT USED FOR UNKNOWN INDICATION
     Dosage: 20 MG, DAILY
     Route: 065
  13. ACETAMINOPHEN [Concomitant]
     Indication: PRODUCT USED FOR UNKNOWN INDICATION
     Route: 065
  14. CITALOPRAM HYDROBROMIDE [Concomitant]
     Indication: PRODUCT USED FOR UNKNOWN INDICATION
     Dosage: 10 MG, DAILY
     Route: 065
  15. LAMOTRIGINE [Suspect]
     Indication: NERVOUS SYSTEM DISORDER
     Dosage: 25 MG, BID
     Route: 048
     Dates: start: 20110807, end: 20110810
  16. ASPIRIN [Concomitant]
     Indication: PRODUCT USED FOR UNKNOWN INDICATION
     Dosage: UNK
     Route: 065

REACTIONS (10)
  - ESCHERICHIA URINARY TRACT INFECTION [None]
  - PLATELET COUNT DECREASED [None]
  - PALLOR [None]
  - HAEMOGLOBIN DECREASED [None]
  - PYREXIA [None]
  - NEUTROPENIC SEPSIS [None]
  - SKIN WARM [None]
  - RASH ERYTHEMATOUS [None]
  - NEUTROPHIL COUNT DECREASED [None]
  - ESCHERICHIA SEPSIS [None]
